FAERS Safety Report 6232509-2 (Version None)
Quarter: 2009Q2

REPORT INFORMATION
  Report Type: 
  Country: None (occurrence: None)
  Receive Date: 20090617
  Receipt Date: 20090610
  Transmission Date: 20091009
  Serious: Yes (Hospitalization)
  Sender: FDA-Public Use
  Company Number: FR-BAYER-200923021GPV

PATIENT
  Age: 49 Year
  Sex: Female

DRUGS (3)
  1. CIFLOX [Suspect]
     Indication: DRUG USE FOR UNKNOWN INDICATION
     Dosage: UNIT DOSE: 500 MG
     Route: 048
     Dates: start: 20090110, end: 20090121
  2. AMOXICILLIN TRIHYDRATE [Suspect]
     Indication: DRUG USE FOR UNKNOWN INDICATION
     Dosage: UNIT DOSE: 1 G
     Route: 048
     Dates: start: 20090110, end: 20090121
  3. INIPOMP [Suspect]
     Indication: DRUG USE FOR UNKNOWN INDICATION
     Dosage: UNIT DOSE: 40 MG
     Route: 048
     Dates: start: 20090110, end: 20090121

REACTIONS (8)
  - ERYTHROMELALGIA [None]
  - FEELING ABNORMAL [None]
  - FEELING DRUNK [None]
  - HEAD DISCOMFORT [None]
  - MUSCLE SPASMS [None]
  - PARAESTHESIA [None]
  - PHOTOPHOBIA [None]
  - TENDON DISORDER [None]
